FAERS Safety Report 9367085 (Version 1)
Quarter: 2013Q2

REPORT INFORMATION
  Report Type: Spontaneous
  Country: CL (occurrence: CL)
  Receive Date: 20130625
  Receipt Date: 20130625
  Transmission Date: 20140414
  Serious: Yes (Other)
  Sender: FDA-Public Use
  Company Number: CL-JNJFOC-20130610344

PATIENT
  Age: 58 Year
  Sex: Female

DRUGS (4)
  1. DOMPERIDONE [Suspect]
     Indication: SLEEP APNOEA SYNDROME
     Route: 065
  2. DOMPERIDONE [Suspect]
     Indication: SNORING
     Route: 065
  3. PSEUDOEPHEDRINE [Suspect]
     Indication: SLEEP APNOEA SYNDROME
     Dosage: AT BEDTIME
     Route: 065
  4. PSEUDOEPHEDRINE [Suspect]
     Indication: SNORING
     Dosage: AT BEDTIME
     Route: 065

REACTIONS (2)
  - Weight decreased [Unknown]
  - Off label use [Unknown]
